FAERS Safety Report 7207380-2 (Version None)
Quarter: 2010Q4

REPORT INFORMATION
  Report Type: 
  Country: None (occurrence: None)
  Receive Date: 20101221
  Receipt Date: 20101207
  Transmission Date: 20110411
  Serious: Yes (Hospitalization)
  Sender: FDA-Public Use
  Company Number: 011444

PATIENT
  Age: 31 Year
  Sex: Male

DRUGS (5)
  1. MACUGEN [Suspect]
     Indication: MACULAR OEDEMA
     Dosage: INTRAMEDULLAR
     Route: 028
     Dates: start: 20100911
  2. COSOPT [Concomitant]
  3. ALPHAGAN [Concomitant]
  4. XALATAN [Concomitant]
  5. FLOXAL EYEDROPS (BENZALKONIUM CHLORIDE, OFLOXACIN) [Concomitant]

REACTIONS (2)
  - ANTIBIOTIC RESISTANT STAPHYLOCOCCUS TEST POSITIVE [None]
  - HERPES SIMPLEX OPHTHALMIC [None]
